FAERS Safety Report 4679826-5 (Version None)
Quarter: 2005Q2

REPORT INFORMATION
  Report Type: 
  Country: None (occurrence: None)
  Receive Date: 20050602
  Receipt Date: 20041006
  Transmission Date: 20051028
  Serious: No
  Sender: FDA-Public Use
  Company Number: US-GLAXOSMITHKLINE-A0528784A

PATIENT
  Age: 63 Year
  Sex: Female

DRUGS (2)
  1. AUGMENTIN [Suspect]
     Indication: SKIN INFECTION
     Dosage: 1000MG TWICE PER DAY
     Route: 048
     Dates: start: 20040917, end: 20040920
  2. FOSAMAX [Concomitant]

REACTIONS (5)
  - ARTHRALGIA [None]
  - DIARRHOEA [None]
  - NAUSEA [None]
  - RASH [None]
  - URTICARIA [None]
